FAERS Safety Report 11499632 (Version 2)
Quarter: 2015Q3

REPORT INFORMATION
  Report Type: Spontaneous
  Country: DE (occurrence: DE)
  Receive Date: 20150914
  Receipt Date: 20150924
  Transmission Date: 20151125
  Serious: Yes (Hospitalization)
  Sender: FDA-Public Use
  Company Number: DE-AMGEN-DEUSP2015093645

PATIENT
  Sex: Female

DRUGS (30)
  1. PEGFILGRASTIM [Suspect]
     Active Substance: PEGFILGRASTIM
     Dosage: ON DAY 4
     Route: 058
     Dates: start: 20150906
  2. BISOPROLOL [Concomitant]
     Active Substance: BISOPROLOL
     Indication: HYPERTENSION
     Dosage: 2.5 MG, (1 IN 1 D)
     Route: 048
     Dates: end: 20150827
  3. PREDNISOLONE. [Suspect]
     Active Substance: PREDNISOLONE
     Dosage: UNK, (1 IN 1 D)
     Route: 048
     Dates: start: 20150819
  4. DOXORUBICINE                       /00330901/ [Suspect]
     Active Substance: DOXORUBICIN
     Indication: B-CELL LYMPHOMA
     Dosage: UNK, ON DAY 1
     Route: 042
     Dates: start: 20150819
  5. SULFAMETHOXAZOLE-TRIMETHOPRIM (SMZ) [Concomitant]
     Active Substance: SULFAMETHOXAZOLE\TRIMETHOPRIM
     Indication: PROPHYLAXIS
     Dosage: 960 MG, (3 IN 1 WK)
     Route: 048
     Dates: start: 20150803
  6. ALLOPURINOL. [Concomitant]
     Active Substance: ALLOPURINOL
     Indication: PROPHYLAXIS
     Dosage: 300 MG, (1 IN 1 D)
     Route: 048
     Dates: start: 20150805
  7. ALLOPURINOL. [Concomitant]
     Active Substance: ALLOPURINOL
     Dosage: 300 MG, (1 IN 1 D)
     Route: 048
     Dates: end: 20150915
  8. AMPHOTERICIN B. [Concomitant]
     Active Substance: AMPHOTERICIN B
     Dosage: 6 IN 1 D
     Route: 048
     Dates: start: 20150909
  9. PREDNISOLONE. [Suspect]
     Active Substance: PREDNISOLONE
     Indication: B-CELL LYMPHOMA
     Dosage: 100 MG, (1 IN 1 D)
     Route: 048
     Dates: start: 20150803
  10. ACICLOVIR [Concomitant]
     Active Substance: ACYCLOVIR
     Dosage: 400 MG, (3 IN 1 D)
     Route: 048
     Dates: start: 20150805
  11. COLECALCIFEROL [Concomitant]
     Active Substance: CHOLECALCIFEROL
     Indication: OSTEOPOROSIS
     Dosage: 2000 IU, (1 IN 1 WK)
     Route: 048
     Dates: start: 20150807
  12. LERCANIDIPINE HYDROCHLORIDE [Concomitant]
     Active Substance: LERCANIDIPINE HYDROCHLORIDE
     Indication: HYPERTENSION
     Dosage: 20 MG, (1 IN 1 D)
     Route: 048
     Dates: start: 20150827
  13. DOXORUBICINE                       /00330901/ [Suspect]
     Active Substance: DOXORUBICIN
     Dosage: 1 IN 1 D
     Route: 042
     Dates: start: 20150903
  14. PANTOPRAZOLE SODIUM. [Concomitant]
     Active Substance: PANTOPRAZOLE SODIUM
     Indication: PROPHYLAXIS
     Dosage: 40 MG, (1 IN 1 D)
     Route: 048
     Dates: start: 20150730
  15. VALSARTAN. [Concomitant]
     Active Substance: VALSARTAN
     Indication: HYPERTENSION
     Dosage: 320 MG, (1 IN 1 D)
     Route: 048
     Dates: end: 20150827
  16. CIPROFLOXACIN. [Concomitant]
     Active Substance: CIPROFLOXACIN
     Indication: PROPHYLAXIS
     Dosage: 500 MG, (2 IN 1 D)
     Route: 048
     Dates: start: 20150824
  17. PEGFILGRASTIM [Suspect]
     Active Substance: PEGFILGRASTIM
     Indication: B-CELL LYMPHOMA
     Dosage: UNK, ON DAY 5
     Route: 058
     Dates: start: 20150823
  18. RITUXIMAB [Suspect]
     Active Substance: RITUXIMAB
     Indication: B-CELL LYMPHOMA
     Dosage: UNK
     Route: 042
     Dates: start: 20150814
  19. RITUXIMAB [Suspect]
     Active Substance: RITUXIMAB
     Dosage: UNK
     Route: 042
     Dates: start: 20150902
  20. PREDNISOLONE. [Suspect]
     Active Substance: PREDNISOLONE
     Dosage: DAY 1-5
     Route: 048
     Dates: start: 20150903
  21. VINCRISTINE [Suspect]
     Active Substance: VINCRISTINE
     Indication: B-CELL LYMPHOMA
     Dosage: UNK, ON DAY 1
     Route: 042
     Dates: start: 20150819
  22. SULFAMETHOXAZOLE-TRIMETHOPRIM (SMZ) [Concomitant]
     Active Substance: SULFAMETHOXAZOLE\TRIMETHOPRIM
     Dosage: 960 MG, (3 IN 1 WK)
     Route: 048
     Dates: start: 20150805
  23. SODIUM PICOSULFATE [Concomitant]
     Active Substance: SODIUM PICOSULFATE
     Indication: CONSTIPATION
     Dosage: UNK, (2 IN 1 D)
     Route: 048
  24. CIPROFLOXACIN. [Concomitant]
     Active Substance: CIPROFLOXACIN
     Dosage: 500 MG,(2 IN 1 D)
     Route: 048
     Dates: start: 20150908, end: 20150910
  25. HYDROCHLOROTHIAZIDE. [Concomitant]
     Active Substance: HYDROCHLOROTHIAZIDE
     Indication: HYPERTENSION
     Dosage: 25 MG, (1 IN 1 D)
     Route: 048
     Dates: end: 20150827
  26. CYCLOPHOSPHAMIDE. [Suspect]
     Active Substance: CYCLOPHOSPHAMIDE
     Indication: B-CELL LYMPHOMA
     Dosage: UNK
     Route: 042
     Dates: start: 20150819
  27. CYCLOPHOSPHAMIDE. [Suspect]
     Active Substance: CYCLOPHOSPHAMIDE
     Dosage: 1 IN 1 D
     Route: 042
     Dates: start: 20150903
  28. VINCRISTINE [Suspect]
     Active Substance: VINCRISTINE
     Dosage: 1 IN 1 D
     Route: 042
     Dates: start: 20150903
  29. ACICLOVIR [Concomitant]
     Active Substance: ACYCLOVIR
     Indication: PROPHYLAXIS
     Dosage: 400 MG, (4 IN 1 D)
     Route: 048
     Dates: start: 20150805
  30. AMPHOTERICIN B. [Concomitant]
     Active Substance: AMPHOTERICIN B
     Indication: PROPHYLAXIS
     Dosage: UNK, 6 IN 1 D
     Route: 048
     Dates: start: 20150805

REACTIONS (4)
  - Syncope [Recovered/Resolved]
  - Hypotension [Recovered/Resolved]
  - Pyrexia [Recovered/Resolved]
  - Pyrexia [Recovered/Resolved]

NARRATIVE: CASE EVENT DATE: 20150810
